FAERS Safety Report 15433004 (Version 1)
Quarter: 2018Q3

REPORT INFORMATION
  Report Type: Spontaneous
  Country: DE (occurrence: DE)
  Receive Date: 20180927
  Receipt Date: 20180927
  Transmission Date: 20181010
  Serious: No
  Sender: FDA-Public Use
  Company Number: DE-NOVEN PHARMACEUTICALS, INC.-DE2018000283

PATIENT

DRUGS (1)
  1. ESTRADIOL/NORETHISTERONE ACETATE [Suspect]
     Active Substance: ESTRADIOL\NORETHINDRONE ACETATE
     Indication: MENOPAUSAL SYMPTOMS
     Dosage: UNK, UNKNOWN
     Route: 062

REACTIONS (6)
  - Quality of life decreased [Unknown]
  - Hyperhidrosis [Unknown]
  - Insomnia [Unknown]
  - Hot flush [Unknown]
  - Feeling abnormal [Unknown]
  - Erythema [Unknown]
